FAERS Safety Report 23916485 (Version 3)
Quarter: 2025Q4

REPORT INFORMATION
  Report Type: Spontaneous
  Country: US (occurrence: US)
  Receive Date: 20240529
  Receipt Date: 20251228
  Transmission Date: 20260118
  Serious: No
  Sender: SANOFI AVENTIS
  Company Number: US-SA-SAC20240528000311

PATIENT
  Age: 66 Year
  Sex: Female
  Weight: 50 kg

DRUGS (23)
  1. REZUROCK [Suspect]
     Active Substance: BELUMOSUDIL
     Indication: Graft versus host disease
     Dosage: 200 MG, QD
     Route: 048
  2. REZUROCK [Suspect]
     Active Substance: BELUMOSUDIL
     Dosage: 200 MG, BID
     Route: 048
     Dates: start: 202406
  3. SENNA [Concomitant]
     Active Substance: SENNOSIDES
  4. CALCIUM [Concomitant]
     Active Substance: CALCIUM
  5. LEVOTHYROXINE [Concomitant]
     Active Substance: LEVOTHYROXINE
  6. ZYRTEC [Concomitant]
     Active Substance: CETIRIZINE HYDROCHLORIDE
  7. PROTONIX [Concomitant]
     Active Substance: PANTOPRAZOLE SODIUM
  8. NALOXONE [Concomitant]
     Active Substance: NALOXONE
  9. RALOXIFENE [Concomitant]
     Active Substance: RALOXIFENE
  10. HUMALOG [Concomitant]
     Active Substance: INSULIN LISPRO
  11. VITAMIN D3 [Concomitant]
     Active Substance: CHOLECALCIFEROL
  12. SERTRALINE [Concomitant]
     Active Substance: SERTRALINE HYDROCHLORIDE
  13. OXYCODONE [Concomitant]
     Active Substance: OXYCODONE
  14. ZOFRAN [Concomitant]
     Active Substance: ONDANSETRON HYDROCHLORIDE
  15. PROMETHAZINE [Concomitant]
     Active Substance: PROMETHAZINE HYDROCHLORIDE
  16. LANTUS [Concomitant]
     Active Substance: INSULIN GLARGINE
  17. METOCLOPRAMIDE [Concomitant]
     Active Substance: METOCLOPRAMIDE
  18. RESTASIS [Concomitant]
     Active Substance: CYCLOSPORINE
  19. ALBUTEROL [Concomitant]
     Active Substance: ALBUTEROL
  20. SIMVASTATIN [Concomitant]
     Active Substance: SIMVASTATIN
  21. PROAIR HFA [Concomitant]
     Active Substance: ALBUTEROL SULFATE
  22. BUDESONIDE [Concomitant]
     Active Substance: BUDESONIDE
  23. PREGABALIN [Concomitant]
     Active Substance: PREGABALIN

REACTIONS (6)
  - Alopecia [Unknown]
  - Bone pain [Not Recovered/Not Resolved]
  - Spinal rod insertion [Unknown]
  - Osteoporosis [Unknown]
  - Product prescribing error [Unknown]
  - Inappropriate schedule of product administration [Unknown]

NARRATIVE: CASE EVENT DATE: 20240101
